FAERS Safety Report 7524679-0 (Version None)
Quarter: 2011Q2

REPORT INFORMATION
  Report Type: 
  Country: None (occurrence: None)
  Receive Date: 20110525
  Receipt Date: 20110511
  Transmission Date: 20111010
  Serious: Yes (Life-Threatening)
  Sender: FDA-Public Use
  Company Number: 1000021052

PATIENT
  Age: 25 Year
  Sex: Male

DRUGS (2)
  1. MEMANTINE HYDROCHLORIDE [Suspect]
     Indication: AMNESIA
  2. DONEPEZIL HCL [Suspect]
     Indication: AMNESIA
     Dosage: 10 MG (10 MG,1 IN 1 D)
     Dates: start: 20020101

REACTIONS (2)
  - VENTRICULAR FIBRILLATION [None]
  - CONDITION AGGRAVATED [None]
